FAERS Safety Report 10179488 (Version 1)
Quarter: 2014Q2

REPORT INFORMATION
  Report Type: Spontaneous
  Country: US (occurrence: None)
  Receive Date: 20140416
  Receipt Date: 20140416
  Transmission Date: 20141212
  Serious: Yes (Other)
  Sender: FDA-Public Use
  Company Number: 163-POMAL-13093520

PATIENT
  Age: 63 Year
  Sex: Male
  Weight: 181 kg

DRUGS (23)
  1. POMALYST [Suspect]
     Indication: PLASMA CELL MYELOMA
     Route: 048
     Dates: start: 201307
  2. ZANTAC [Concomitant]
  3. AMBIEN [Concomitant]
  4. ASA [Concomitant]
  5. VITAMIN C (ASCORBIC ACID) [Concomitant]
  6. LASIX (FUROSEMIDE) [Concomitant]
  7. PREDNISONE [Concomitant]
  8. BENADRYL [Concomitant]
  9. NAPROXEN [Concomitant]
  10. GABAPENTIN [Concomitant]
  11. LISINOPRIL [Concomitant]
  12. METFORMIN HCL [Concomitant]
  13. GLIMEPIRIDE [Concomitant]
  14. ACYCLOVIR [Concomitant]
  15. FLOMAX [Concomitant]
  16. MULTIVITAMINS (MULTIVITAMINS) [Concomitant]
  17. ECHINACEA [Concomitant]
  18. TYLENOL (PARACETAMOL) [Concomitant]
  19. TRADJENTA [Concomitant]
  20. TRIAMCINOLONE ACETONIDE [Concomitant]
  21. VITAMIN B12 [Concomitant]
  22. VITAMIN B12 (CYANOCOBALAMIN) [Concomitant]
  23. GLUCOSAMINE CHONDROITIN [Concomitant]

REACTIONS (4)
  - Rash maculo-papular [None]
  - Fatigue [None]
  - Dyspnoea [None]
  - Nasopharyngitis [None]
